FAERS Safety Report 17268188 (Version 2)
Quarter: 2020Q1

REPORT INFORMATION
  Report Type: Report from Study
  Country: US (occurrence: US)
  Receive Date: 20200114
  Receipt Date: 20200304
  Transmission Date: 20200409
  Serious: No
  Sender: FDA-Public Use
  Company Number: US-KYOWAKIRIN-2020BKK000125

PATIENT

DRUGS (6)
  1. NOURIANZ [Suspect]
     Active Substance: ISTRADEFYLLINE
     Dosage: 20 MG, QD
     Route: 065
     Dates: end: 2020
  2. CARBIDOPA/LEVODOPA [Suspect]
     Active Substance: CARBIDOPA\LEVODOPA
     Indication: PARKINSON^S DISEASE
     Dosage: UNKNOWN
     Route: 065
  3. METHYLPREDNISOLONE. [Concomitant]
     Active Substance: METHYLPREDNISOLONE
     Indication: PRODUCT USED FOR UNKNOWN INDICATION
     Dosage: UNKNOWN
     Route: 065
  4. NOURIANZ [Suspect]
     Active Substance: ISTRADEFYLLINE
     Indication: PARKINSON^S DISEASE
     Dosage: 10 MG, ONCE DAILY
     Route: 065
     Dates: start: 202001
  5. AZITHROMYCIN ANHYDROUS. [Concomitant]
     Active Substance: AZITHROMYCIN ANHYDROUS
     Indication: PRODUCT USED FOR UNKNOWN INDICATION
     Dosage: UNKNOWN
     Route: 065
  6. NOURIANZ [Suspect]
     Active Substance: ISTRADEFYLLINE
     Dosage: 40 MG
     Route: 065
     Dates: start: 201912

REACTIONS (9)
  - Nasopharyngitis [Unknown]
  - Drug ineffective [Unknown]
  - Tremor [Unknown]
  - Weight decreased [Unknown]
  - Constipation [Unknown]
  - Feeling abnormal [Unknown]
  - Wrong technique in product usage process [Not Recovered/Not Resolved]
  - Sleep disorder [Unknown]
  - Asthma [Unknown]

NARRATIVE: CASE EVENT DATE: 201912
